FAERS Safety Report 21760588 (Version 1)
Quarter: 2022Q4

REPORT INFORMATION
  Report Type: Spontaneous
  Country: IT (occurrence: IT)
  Receive Date: 20221221
  Receipt Date: 20221221
  Transmission Date: 20230112
  Serious: Yes (Other)
  Sender: FDA-Public Use
  Company Number: None

PATIENT
  Age: 59 Year
  Sex: Female

DRUGS (3)
  1. OLANZAPINE [Suspect]
     Active Substance: OLANZAPINE
     Indication: Drug abuse
     Dosage: 5 MG, UNKNOWN
     Route: 048
     Dates: start: 20221114, end: 20221114
  2. EN [Suspect]
     Active Substance: DELORAZEPAM
     Indication: Drug abuse
     Dosage: 2 MG, UNKNOWN
     Route: 048
     Dates: start: 20221114, end: 20221114
  3. FEVARIN [Suspect]
     Active Substance: FLUVOXAMINE MALEATE
     Indication: Drug abuse
     Dosage: 50 MG, UNKNOWN
     Route: 048
     Dates: start: 20221114, end: 20221114

REACTIONS (2)
  - Toxicity to various agents [Recovering/Resolving]
  - Sopor [Recovering/Resolving]

NARRATIVE: CASE EVENT DATE: 20221114
